FAERS Safety Report 7808984-6 (Version None)
Quarter: 2011Q4

REPORT INFORMATION
  Report Type: 
  Country: None (occurrence: None)
  Receive Date: 20111007
  Receipt Date: 20110930
  Transmission Date: 20120403
  Serious: Yes (Other)
  Sender: FDA-Public Use
  Company Number: ACO_26358_2011

PATIENT
  Age: 71 Year
  Sex: Female
  Weight: 74.8 kg

DRUGS (15)
  1. TAMSULOSIN HCL [Concomitant]
  2. AMPYRA [Suspect]
     Indication: GAIT DISTURBANCE
     Dosage: 10 MG, QD, ORAL, 10 MG, 1 12 HRS, ORAL
     Route: 048
     Dates: start: 20110719, end: 20110701
  3. AMPYRA [Suspect]
     Indication: GAIT DISTURBANCE
     Dosage: 10 MG, QD, ORAL, 10 MG, 1 12 HRS, ORAL
     Route: 048
     Dates: start: 20110701, end: 20110701
  4. VITAMIN B-12 [Concomitant]
  5. CALCIUM CARBONATE [Concomitant]
  6. SYNTHROID [Concomitant]
  7. AMANTADINE HCL [Concomitant]
  8. OXYBUTYNIN [Concomitant]
  9. ASPIRIN [Concomitant]
  10. SAVELLA [Concomitant]
  11. GLUCOSAMINE (GLUCOSAMINE) [Concomitant]
  12. HYDROCODONE BITARTRATE [Concomitant]
  13. PRILOSEC [Concomitant]
  14. ESTRADIOL [Concomitant]
  15. VITAMIN D NOS (VITAMIN D NOS) [Concomitant]

REACTIONS (4)
  - AGGRESSION [None]
  - CONVULSION [None]
  - UNRESPONSIVE TO STIMULI [None]
  - HYPERVENTILATION [None]
